FAERS Safety Report 25206546 (Version 2)
Quarter: 2025Q2

REPORT INFORMATION
  Report Type: Spontaneous
  Country: US (occurrence: US)
  Receive Date: 20250417
  Receipt Date: 20250507
  Transmission Date: 20250717
  Serious: No
  Sender: JOHNSON AND JOHNSON
  Company Number: US-JNJFOC-20250404203

PATIENT
  Age: 53 Year

DRUGS (2)
  1. TREMFYA [Suspect]
     Active Substance: GUSELKUMAB
     Indication: Psoriasis
     Route: 058
  2. TREMFYA [Suspect]
     Active Substance: GUSELKUMAB

REACTIONS (10)
  - Injection site swelling [Unknown]
  - Injection site haemorrhage [Unknown]
  - Conjunctivitis [Unknown]
  - Psoriasis [Unknown]
  - Product dose omission issue [Unknown]
  - Therapeutic response decreased [Unknown]
  - Product physical issue [Unknown]
  - Fatigue [Unknown]
  - Arthralgia [Unknown]
  - Device issue [Unknown]

NARRATIVE: CASE EVENT DATE: 20250308
